FAERS Safety Report 25846430 (Version 2)
Quarter: 2025Q4

REPORT INFORMATION
  Report Type: Spontaneous
  Country: CA (occurrence: CA)
  Receive Date: 20250925
  Receipt Date: 20251114
  Transmission Date: 20260117
  Serious: Yes (Other)
  Sender: PFIZER
  Company Number: CA-PFIZER INC-202500186903

PATIENT
  Age: 70 Year
  Sex: Female

DRUGS (10)
  1. RUXIENCE [Suspect]
     Active Substance: RITUXIMAB-PVVR
     Indication: Rheumatoid arthritis
     Dosage: 500 MG, DAY 1 AND DAY 15
     Route: 042
     Dates: start: 20220310, end: 20220324
  2. RUXIENCE [Suspect]
     Active Substance: RITUXIMAB-PVVR
     Dosage: 500 MG, ON DAY 1 AND DAY 15
     Route: 042
     Dates: start: 20220913, end: 20220928
  3. RUXIENCE [Suspect]
     Active Substance: RITUXIMAB-PVVR
     Dosage: 500 MG, ON DAY 1 AND DAY 15
     Route: 042
     Dates: start: 20230426, end: 20230426
  4. RUXIENCE [Suspect]
     Active Substance: RITUXIMAB-PVVR
     Dosage: 500 MG, ON DAY 1 AND DAY 15
     Route: 042
     Dates: start: 20250320, end: 20250320
  5. BETAHISTINE [Concomitant]
     Active Substance: BETAHISTINE
     Dosage: 1 DF
  6. ELIQUIS [Concomitant]
     Active Substance: APIXABAN
     Dosage: 1 DF
  7. LEFLUNOMIDE [Concomitant]
     Active Substance: LEFLUNOMIDE
     Dosage: 1 DF
  8. LEVOTHYROXINE [Concomitant]
     Active Substance: LEVOTHYROXINE
     Dosage: 1 DF
  9. METOPROLOL [Concomitant]
     Active Substance: METOPROLOL
     Dosage: 1 DF
  10. OMEPRAZOLE [Concomitant]
     Active Substance: OMEPRAZOLE
     Dosage: 1 DF

REACTIONS (1)
  - Hernia repair [Unknown]

NARRATIVE: CASE EVENT DATE: 20250901
